FAERS Safety Report 9081007 (Version 1)
Quarter: 2013Q1

REPORT INFORMATION
  Report Type: Report from Study
  Country: US (occurrence: US)
  Receive Date: 20130130
  Receipt Date: 20130130
  Transmission Date: 20140127
  Serious: No
  Sender: FDA-Public Use
  Company Number: US-ABBOTT-12P-163-0960945-00

PATIENT
  Age: 72 Year
  Sex: Male

DRUGS (9)
  1. HUMIRA 40 MG/ 0.8 ML PRE-FILLED SYRINGE [Suspect]
     Indication: COLITIS ULCERATIVE
     Dates: start: 20120529
  2. HUMIRA 40 MG/0.8 ML PEN [Suspect]
     Indication: COLITIS ULCERATIVE
     Route: 058
  3. ASACOL [Concomitant]
     Indication: COLITIS ULCERATIVE
  4. CITALOPRAM [Concomitant]
     Indication: STRESS
     Dosage: 20 MG DAILY
  5. SIMVASTATIN [Concomitant]
     Indication: BLOOD CHOLESTEROL INCREASED
     Dosage: 20 MG DAILY
  6. TEMAZEPAM [Concomitant]
     Indication: RESTLESS LEGS SYNDROME
     Dosage: 15 MG DAILY
  7. DOXAZOSIN [Concomitant]
     Indication: POLLAKIURIA
     Dosage: 4 MG DAILY
  8. DOXAZOSIN [Concomitant]
     Indication: MICTURITION URGENCY
  9. PANTOPRAZOLE [Concomitant]
     Indication: GASTROOESOPHAGEAL REFLUX DISEASE
     Dosage: 40 MG DAILY

REACTIONS (4)
  - Malaise [Recovering/Resolving]
  - Injection site bruising [Recovering/Resolving]
  - Diarrhoea [Recovering/Resolving]
  - Injection site pain [Recovering/Resolving]
